FAERS Safety Report 21421032 (Version 1)
Quarter: 2022Q4

REPORT INFORMATION
  Report Type: Spontaneous
  Country: US (occurrence: US)
  Receive Date: 20221007
  Receipt Date: 20221007
  Transmission Date: 20230113
  Serious: Yes (Other)
  Sender: FDA-Public Use
  Company Number: US-GLAXOSMITHKLINE-US2022140737

PATIENT
  Age: 34 Year
  Sex: Female

DRUGS (2)
  1. LAMICTAL [Suspect]
     Active Substance: LAMOTRIGINE
     Indication: Seizure
     Dosage: 300 MG
  2. LAMICTAL [Suspect]
     Active Substance: LAMOTRIGINE
     Dosage: 400 MG

REACTIONS (5)
  - Seizure [Unknown]
  - Chest pain [Unknown]
  - Dyspnoea [Unknown]
  - Cardiac disorder [Unknown]
  - Odynophagia [Unknown]

NARRATIVE: CASE EVENT DATE: 20220726
